FAERS Safety Report 7888216-3 (Version None)
Quarter: 2011Q4

REPORT INFORMATION
  Report Type: 
  Country: None (occurrence: None)
  Receive Date: 20111101
  Receipt Date: 20111017
  Transmission Date: 20120403
  Serious: Yes (Hospitalization)
  Sender: FDA-Public Use
  Company Number: TR-1188657

PATIENT
  Age: 32 Year
  Sex: Male

DRUGS (1)
  1. ALCAINE [Suspect]
     Indication: FOREIGN BODY IN EYE
     Dosage: (OPHTHALMIC)
     Route: 047

REACTIONS (8)
  - PHOTOPHOBIA [None]
  - DRUG ABUSE [None]
  - LACRIMATION INCREASED [None]
  - ULCERATIVE KERATITIS [None]
  - EYE PAIN [None]
  - CORNEAL OEDEMA [None]
  - CORNEAL EPITHELIUM DEFECT [None]
  - CONJUNCTIVAL HYPERAEMIA [None]
